FAERS Safety Report 9647986 (Version 1)
Quarter: 2013Q4

REPORT INFORMATION
  Report Type: Spontaneous
  Country: US (occurrence: US)
  Receive Date: 20131028
  Receipt Date: 20131028
  Transmission Date: 20140711
  Serious: No
  Sender: FDA-Public Use
  Company Number: US-PFIZER INC-2013305802

PATIENT
  Age: 87 Year
  Sex: Female
  Weight: 81.63 kg

DRUGS (8)
  1. NEURONTIN [Suspect]
     Indication: SPINAL COLUMN STENOSIS
     Dosage: 100 MG, DAILY FOR ONE WEEK
     Dates: start: 2013, end: 2013
  2. NEURONTIN [Suspect]
     Dosage: 100 MG, 2X/DAY FOR THE SECOND WEEK
     Dates: start: 2013, end: 2013
  3. NEURONTIN [Suspect]
     Dosage: 100 MG, 3X/DAY FOR THE THIRD WEEK
     Dates: start: 2013, end: 20131022
  4. TYLENOL [Suspect]
     Dosage: UNK
  5. SYNTHROID [Concomitant]
     Indication: HYPERTHYROIDISM
     Dosage: 1.25 MG, DAILY
  6. OMEPRAZOLE [Concomitant]
     Indication: GASTROOESOPHAGEAL REFLUX DISEASE
     Dosage: 40 MG, DAILY
  7. XANAX [Concomitant]
     Indication: ANXIETY
     Dosage: 0.5 MG, 2X/DAY
  8. PLAVIX [Concomitant]
     Indication: ATRIOVENTRICULAR BLOCK
     Dosage: 75 MG, DAILY

REACTIONS (5)
  - Off label use [Unknown]
  - Visual impairment [Unknown]
  - Dizziness [Unknown]
  - Somnolence [Unknown]
  - Lymphadenopathy [Unknown]
